FAERS Safety Report 6684880-5 (Version None)
Quarter: 2010Q2

REPORT INFORMATION
  Report Type: 
  Country: None (occurrence: None)
  Receive Date: 20100414
  Receipt Date: 20100329
  Transmission Date: 20101027
  Serious: Yes (Hospitalization, Other)
  Sender: FDA-Public Use
  Company Number: 08-0105

PATIENT
  Age: 47 Year
  Sex: Male
  Weight: 113.3993 kg

DRUGS (7)
  1. MIDRIN [Suspect]
     Indication: HEADACHE
     Dosage: 1 CAPSULE BID ORAL
     Route: 048
     Dates: start: 20080705, end: 20080705
  2. LAMICTAL [Suspect]
     Indication: BIPOLAR DISORDER
     Dosage: TWICE DAILY ORAL
     Route: 048
  3. AMBIEN [Suspect]
  4. THYROXINE SODIUM (SYNTHROID) [Concomitant]
  5. ABILIFY [Concomitant]
  6. CADUET [Concomitant]
  7. FENOFIBRATE [Concomitant]

REACTIONS (15)
  - BIPOLAR I DISORDER [None]
  - CHEST PAIN [None]
  - DISORIENTATION [None]
  - DIZZINESS [None]
  - DRUG INTERACTION [None]
  - DRY MOUTH [None]
  - INSOMNIA [None]
  - NECK PAIN [None]
  - NERVE COMPRESSION [None]
  - NEURALGIA [None]
  - RASH [None]
  - STRESS [None]
  - TACHYPHRENIA [None]
  - TENSION HEADACHE [None]
  - VISION BLURRED [None]
